FAERS Safety Report 25384991 (Version 1)
Quarter: 2025Q2

REPORT INFORMATION
  Report Type: Spontaneous
  Country: ES (occurrence: ES)
  Receive Date: 20250602
  Receipt Date: 20250602
  Transmission Date: 20250716
  Serious: Yes (Other)
  Sender: ABBVIE
  Company Number: None

PATIENT
  Age: 50 Year
  Sex: Female

DRUGS (5)
  1. MESALAMINE [Suspect]
     Active Substance: MESALAMINE
     Indication: Colitis ulcerative
     Dosage: 1 G SUPPOSITORIES, 30 SUPPOSITORIES
     Route: 054
     Dates: start: 20250414, end: 20250515
  2. MESALAMINE [Suspect]
     Active Substance: MESALAMINE
     Indication: Colitis ulcerative
     Dosage: 1 G SUPPOSITORIES, 30 SUPPOSITORIES
     Route: 054
     Dates: start: 20250403, end: 20250413
  3. MESALAMINE [Suspect]
     Active Substance: MESALAMINE
     Indication: Colitis ulcerative
     Dosage: 1 G SUPPOSITORIES, 30 SUPPOSITORIES
     Route: 054
     Dates: start: 20230401, end: 20250402
  4. AZATHIOPRINE [Suspect]
     Active Substance: AZATHIOPRINE
     Indication: Colitis ulcerative
     Dosage: 50 MG FILM-COATED TABLETS, 50 TABLETS
     Route: 048
     Dates: start: 20230601, end: 20250402
  5. AZATHIOPRINE [Suspect]
     Active Substance: AZATHIOPRINE
     Indication: Colitis ulcerative
     Dosage: 50 MG FILM-COATED TABLETS, 50 TABLETS
     Route: 048
     Dates: start: 20250403, end: 20250515

REACTIONS (3)
  - Skin hyperpigmentation [Not Recovered/Not Resolved]
  - Headache [Not Recovered/Not Resolved]
  - Nausea [Recovered/Resolved]

NARRATIVE: CASE EVENT DATE: 20250401
